FAERS Safety Report 20408374 (Version 1)
Quarter: 2022Q1

REPORT INFORMATION
  Report Type: Spontaneous
  Country: DE (occurrence: DE)
  Receive Date: 20220201
  Receipt Date: 20220201
  Transmission Date: 20220424
  Serious: Yes (Other)
  Sender: FDA-Public Use
  Company Number: DE-SUN PHARMACEUTICAL INDUSTRIES LTD-2022RR-324878

PATIENT
  Age: 73 Year
  Sex: Male

DRUGS (7)
  1. GEMCITABINE [Suspect]
     Active Substance: GEMCITABINE
     Indication: Leiomyosarcoma
     Dosage: UNK
     Route: 065
  2. GEMCITABINE [Suspect]
     Active Substance: GEMCITABINE
     Dosage: 1000 MILLIGRAM/SQ. METER ON DAYS 1, 8, 15
     Route: 065
  3. GEMCITABINE [Suspect]
     Active Substance: GEMCITABINE
     Dosage: 900 MILLIGRAM/SQ. METER ON DAYS 1, 8
     Route: 065
  4. DOXORUBICIN [Suspect]
     Active Substance: DOXORUBICIN
     Indication: Leiomyosarcoma
     Dosage: UNK, 2 CYCLES
     Route: 065
  5. DOCETAXEL [Suspect]
     Active Substance: DOCETAXEL
     Indication: Leiomyosarcoma
     Dosage: UNK
     Route: 065
  6. PAZOPANIB [Suspect]
     Active Substance: PAZOPANIB
     Indication: Leiomyosarcoma
     Dosage: UNK
     Route: 065
  7. OLARATUMAB [Suspect]
     Active Substance: OLARATUMAB
     Indication: Leiomyosarcoma
     Dosage: UNK, 2 CYCLES
     Route: 065

REACTIONS (3)
  - Neutropenia [Unknown]
  - Disease progression [Unknown]
  - Therapeutic product effect incomplete [Unknown]
